FAERS Safety Report 8053333-4 (Version None)
Quarter: 2012Q1

REPORT INFORMATION
  Report Type: 
  Country: None (occurrence: None)
  Receive Date: 20120118
  Receipt Date: 20120110
  Transmission Date: 20120608
  Serious: Yes (Hospitalization, Other)
  Sender: FDA-Public Use
  Company Number: US-ROCHE-783650

PATIENT
  Sex: Female
  Weight: 77.18 kg

DRUGS (5)
  1. ACCUTANE [Suspect]
     Indication: ACNE
     Route: 065
     Dates: start: 20010307, end: 20010323
  2. PROZAC [Concomitant]
  3. CELEXA [Concomitant]
     Indication: DEPRESSION
     Dosage: 20 TO 40 MG
  4. MIRCETTE [Concomitant]
  5. ACETAMINOPHEN [Concomitant]

REACTIONS (7)
  - CROHN'S DISEASE [None]
  - INFLAMMATORY BOWEL DISEASE [None]
  - POST-TRAUMATIC STRESS DISORDER [None]
  - MEGACOLON [None]
  - DEPRESSION [None]
  - COLITIS ULCERATIVE [None]
  - INTESTINAL PERFORATION [None]
